FAERS Safety Report 6944398-9 (Version None)
Quarter: 2010Q3

REPORT INFORMATION
  Report Type: 
  Country: None (occurrence: None)
  Receive Date: 20100827
  Receipt Date: 20100816
  Transmission Date: 20110219
  Serious: No
  Sender: FDA-Public Use
  Company Number: US-JNJFOC-20100806117

PATIENT
  Sex: Male
  Weight: 131.54 kg

DRUGS (14)
  1. FENTANYL CITRATE [Suspect]
     Indication: PAIN
     Route: 062
  2. SINEMET [Concomitant]
     Indication: PARKINSON'S DISEASE
     Dosage: 25/100 MG TABLET/4 TIMES A DAY/ORAL
     Route: 048
  3. VITAMIN D [Concomitant]
     Indication: VITAMIN D DEFICIENCY
     Route: 048
  4. FINASTERIDE [Concomitant]
     Indication: PROSTATIC DISORDER
     Route: 048
  5. LASIX [Concomitant]
     Indication: FLUID RETENTION
     Route: 048
  6. LASIX [Concomitant]
     Dosage: 20MG/TABLET/40MG/1/2 EVERY DAY
     Route: 048
  7. MORPHINE [Concomitant]
     Indication: PAIN
     Dosage: AS NEEDED
     Route: 048
  8. TOPROL-XL [Concomitant]
     Indication: BLOOD PRESSURE
     Route: 048
  9. SIMVASTATIN [Concomitant]
     Indication: HYPERLIPIDAEMIA
     Dosage: 20MG/TABLET/40MG/1/2/EVERY DAY/ORAL
     Route: 048
  10. NEXIUM [Concomitant]
     Indication: ABDOMINAL DISCOMFORT
     Route: 048
  11. TRICOR [Concomitant]
     Indication: BLOOD TRIGLYCERIDES
     Route: 048
  12. PRAMIPEXOLE [Concomitant]
     Indication: PARKINSON'S DISEASE
     Route: 048
  13. FLOMAX [Concomitant]
     Indication: PROSTATIC DISORDER
     Route: 048
  14. XANAX [Concomitant]
     Indication: ANXIETY
     Route: 048

REACTIONS (3)
  - DYSPNOEA [None]
  - FEELING HOT [None]
  - TREATMENT NONCOMPLIANCE [None]
